FAERS Safety Report 23378492 (Version 2)
Quarter: 2024Q1

REPORT INFORMATION
  Report Type: Report from Study
  Country: US (occurrence: US)
  Receive Date: 20240108
  Receipt Date: 20240215
  Transmission Date: 20240409
  Serious: Yes (Other)
  Sender: FDA-Public Use
  Company Number: US-GILEAD-2024-0657367

PATIENT
  Sex: Male

DRUGS (1)
  1. AZTREONAM LYSINE [Suspect]
     Active Substance: AZTREONAM LYSINE
     Indication: Cystic fibrosis
     Dosage: 1 ML VIAL ALTERA NEBULIZER TID FOR 28 DAYS ON AND OFF
     Route: 065
     Dates: start: 202202

REACTIONS (6)
  - Cystic fibrosis [Unknown]
  - Pleurisy [Unknown]
  - Seasonal allergy [Unknown]
  - Nasal polyps [Unknown]
  - Nasal congestion [Unknown]
  - Product dose omission issue [Recovered/Resolved]
